FAERS Safety Report 8460005-0 (Version None)
Quarter: 2012Q2

REPORT INFORMATION
  Report Type: 
  Country: None (occurrence: None)
  Receive Date: 20120622
  Receipt Date: 20120619
  Transmission Date: 20120825
  Serious: Yes (Hospitalization)
  Sender: FDA-Public Use
  Company Number: PHHY2012IT052491

PATIENT
  Sex: Male

DRUGS (2)
  1. PANTOPRAZOLE [Concomitant]
  2. LEVOFLOXACIN [Suspect]
     Indication: TONSILLITIS
     Dosage: 500 MG, DAILY
     Route: 048
     Dates: start: 20120511, end: 20120515

REACTIONS (3)
  - OCULAR HYPERAEMIA [None]
  - FACE OEDEMA [None]
  - LIP OEDEMA [None]
